FAERS Safety Report 8902478 (Version 2)
Quarter: 2012Q4

REPORT INFORMATION
  Report Type: 
  Country: JP (occurrence: JP)
  Receive Date: 20121112
  Receipt Date: 20121126
  Transmission Date: 20130627
  Serious: Yes (Hospitalization)
  Sender: FDA-Public Use
  Company Number: JP-ROCHE-1154095

PATIENT
  Age: 79 Year
  Sex: Female

DRUGS (1)
  1. CEFTRIAXONE SODIUM [Suspect]
     Indication: PLEURISY
     Dosage: Dosage is uncertain.
     Route: 042

REACTIONS (1)
  - Cholelithiasis [Unknown]
